FAERS Safety Report 8223194-9 (Version None)
Quarter: 2012Q1

REPORT INFORMATION
  Report Type: 
  Country: None (occurrence: None)
  Receive Date: 20120321
  Receipt Date: 20120307
  Transmission Date: 20120608
  Serious: Yes (Hospitalization)
  Sender: FDA-Public Use
  Company Number: FR-ROCHE-1046757

PATIENT
  Sex: Female

DRUGS (22)
  1. LANSOPRAZOLE [Concomitant]
     Route: 048
     Dates: start: 20111024, end: 20111028
  2. GESTODENE AND ETHINYL ESTRADIOL [Concomitant]
     Route: 048
  3. ATARAX [Concomitant]
  4. CALCIPARINE [Concomitant]
     Route: 058
     Dates: start: 20111009
  5. SOMATOSTATINE [Concomitant]
     Route: 048
     Dates: start: 20111024, end: 20111028
  6. PIPERACILLIN [Concomitant]
  7. CANCIDAS [Suspect]
     Indication: PRODUCT USED FOR UNKNOWN INDICATION
     Dates: start: 20111018, end: 20111024
  8. PROGRAF [Concomitant]
     Route: 042
     Dates: start: 20111009
  9. PIPERACILLIN AND TAZOBACTAM [Concomitant]
     Route: 042
     Dates: start: 20111024
  10. VITAMIN D [Concomitant]
     Route: 048
  11. MORPHINE [Concomitant]
  12. LASIX [Concomitant]
     Route: 042
     Dates: start: 20111009, end: 20111028
  13. METOPROLOL SUCCINATE [Concomitant]
     Route: 048
  14. CIPROFLOXACIN [Concomitant]
  15. VALGANCICLOVIR [Suspect]
     Indication: PRODUCT USED FOR UNKNOWN INDICATION
     Route: 048
     Dates: start: 20111009, end: 20111031
  16. FELODIPINE [Concomitant]
     Route: 048
  17. PANTOPRAZOLE [Concomitant]
  18. ACUPAN [Concomitant]
  19. PROPOFOL [Concomitant]
  20. MYCOPHENOLATE MOFETIL (CELLCEPT) [Suspect]
     Indication: PRODUCT USED FOR UNKNOWN INDICATION
     Route: 048
     Dates: start: 20111007, end: 20111031
  21. ATACAND [Concomitant]
     Route: 048
  22. NICARDIPINE HYDROCHLORIDE [Concomitant]

REACTIONS (3)
  - LEUKOPENIA [None]
  - LYMPHOPENIA [None]
  - NEUTROPENIA [None]
